FAERS Safety Report 8273285-1 (Version None)
Quarter: 2012Q2

REPORT INFORMATION
  Report Type: 
  Country: None (occurrence: None)
  Receive Date: 20120411
  Receipt Date: 20120405
  Transmission Date: 20120825
  Serious: Yes (Other)
  Sender: FDA-Public Use
  Company Number: US-PFIZER INC-2012075321

PATIENT
  Sex: Female
  Weight: 53.97 kg

DRUGS (4)
  1. LYRICA [Suspect]
     Indication: PAIN
     Dosage: 50 MG, 2X/DAY
     Route: 048
     Dates: start: 20120201, end: 20120319
  2. CYMBALTA [Concomitant]
     Indication: PAIN
     Dosage: UNK
  3. LYRICA [Suspect]
     Indication: FIBROMYALGIA
     Dosage: 50 MG, 3X/DAY
     Route: 048
     Dates: start: 20120101, end: 20120201
  4. LYRICA [Suspect]
     Dosage: 100 MG, 2X/DAY
     Route: 048
     Dates: start: 20120319, end: 20120320

REACTIONS (15)
  - HYPOAESTHESIA [None]
  - RESTLESSNESS [None]
  - EYELID FUNCTION DISORDER [None]
  - HYPOAESTHESIA ORAL [None]
  - LOSS OF CONSCIOUSNESS [None]
  - TIC [None]
  - COORDINATION ABNORMAL [None]
  - SOMNOLENCE [None]
  - DYSKINESIA [None]
  - DYSPNOEA [None]
  - GAIT DISTURBANCE [None]
  - PAIN [None]
  - DYSPHAGIA [None]
  - DIZZINESS [None]
  - LETHARGY [None]
